FAERS Safety Report 4684217-7 (Version None)
Quarter: 2005Q2

REPORT INFORMATION
  Report Type: 
  Country: None (occurrence: None)
  Receive Date: 20050531
  Receipt Date: 20041119
  Transmission Date: 20051028
  Serious: Yes (Hospitalization)
  Sender: FDA-Public Use
  Company Number: US_0411108400

PATIENT
  Age: 41 Year
  Sex: Male

DRUGS (3)
  1. ZYPREXA [Suspect]
  2. LEXAPRO [Concomitant]
  3. LORAZEPAM [Concomitant]

REACTIONS (1)
  - TARDIVE DYSKINESIA [None]
